FAERS Safety Report 5835520-6 (Version None)
Quarter: 2008Q3

REPORT INFORMATION
  Report Type: 
  Country: None (occurrence: None)
  Receive Date: 20080806
  Receipt Date: 20080804
  Transmission Date: 20090109
  Serious: Yes (Other)
  Sender: FDA-Public Use
  Company Number: A0736037A

PATIENT
  Age: 64 Year
  Sex: Female

DRUGS (4)
  1. VALTREX [Suspect]
     Indication: GENITAL HERPES
     Dosage: 500MG PER DAY
     Route: 048
     Dates: start: 20080630
  2. FOSAMAX [Concomitant]
  3. VAGIFEM [Concomitant]
  4. SUPPLEMENT [Concomitant]

REACTIONS (7)
  - AGGRESSION [None]
  - AGITATION [None]
  - ANTISOCIAL PERSONALITY DISORDER [None]
  - DEPRESSED LEVEL OF CONSCIOUSNESS [None]
  - IRRITABILITY [None]
  - OEDEMA PERIPHERAL [None]
  - TEARFULNESS [None]
